FAERS Safety Report 5601704-5 (Version None)
Quarter: 2008Q1

REPORT INFORMATION
  Report Type: 
  Country: None (occurrence: None)
  Receive Date: 20080124
  Receipt Date: 20080121
  Transmission Date: 20080703
  Serious: Yes (Death, Life-Threatening, Hospitalization, Other)
  Sender: FDA-Public Use
  Company Number: US-GILEAD-2008-0015046

PATIENT
  Sex: Male
  Weight: 75.364 kg

DRUGS (10)
  1. EFAVIRENZ/EMTRICITABINE/TENOFOVIR DISOPROXIL FUMARATE [Suspect]
     Indication: HIV INFECTION
     Route: 048
     Dates: start: 20070420, end: 20070526
  2. PREZISTA [Suspect]
     Indication: HIV INFECTION
     Route: 048
     Dates: start: 20070420, end: 20070526
  3. RITONAVIR [Suspect]
     Indication: HIV INFECTION
  4. IBUPFOFEN [Concomitant]
  5. KEFLEX [Concomitant]
     Dates: start: 20070504
  6. ULTRAM [Concomitant]
     Dates: start: 20070523
  7. LORTAB [Concomitant]
     Dates: start: 20070525
  8. SUSTIVA [Concomitant]
     Indication: HIV INFECTION
  9. MOTRIN [Concomitant]
  10. EXTRA STRENGTH TYLENOL [Concomitant]

REACTIONS (3)
  - ARTHRITIS BACTERIAL [None]
  - MULTI-ORGAN FAILURE [None]
  - STAPHYLOCOCCAL SEPSIS [None]
